FAERS Safety Report 9478511 (Version 2)
Quarter: 2013Q4

REPORT INFORMATION
  Report Type: Spontaneous
  Country: AU (occurrence: AU)
  Receive Date: 20130827
  Receipt Date: 20131009
  Transmission Date: 20140711
  Serious: Yes (Death)
  Sender: FDA-Public Use
  Company Number: AU-B.I. PHARMACEUTICALS,INC./RIDGEFIELD-2013-AU-01035AU

PATIENT
  Sex: Female

DRUGS (9)
  1. PRADAXA [Suspect]
     Indication: ATRIAL FIBRILLATION
  2. SYMBICORT [Concomitant]
  3. SPIRIVA [Concomitant]
  4. AMIODARONE [Concomitant]
     Dosage: 200 MG
  5. ENALAPRIL [Concomitant]
     Dosage: 20 MG
  6. FUROSEMIDE [Concomitant]
     Dosage: 80 MG
  7. DIAFORMIN [Concomitant]
  8. MINIDIAB [Concomitant]
     Dosage: 10 MG
  9. NEXIUM [Concomitant]

REACTIONS (1)
  - Lung neoplasm malignant [Fatal]
